FAERS Safety Report 11766956 (Version 2)
Quarter: 2015Q4

REPORT INFORMATION
  Report Type: Report from Study
  Country: DE (occurrence: DE)
  Receive Date: 20151123
  Receipt Date: 20151130
  Transmission Date: 20160304
  Serious: Yes (Death, Hospitalization)
  Sender: FDA-Public Use
  Company Number: PHHY2015DE152451

PATIENT
  Sex: Female

DRUGS (3)
  1. ICL670A [Suspect]
     Active Substance: DEFERASIROX
     Indication: MYELODYSPLASTIC SYNDROME
     Dosage: 1500 MG, QD
     Route: 048
     Dates: start: 20110308, end: 20150526
  2. LISINOPRIL. [Concomitant]
     Active Substance: LISINOPRIL
     Indication: HYPERTENSION
     Dosage: 5 MG, QD
     Route: 065
  3. L-THYROXIN [Concomitant]
     Active Substance: LEVOTHYROXINE SODIUM
     Indication: HYPOTHYROIDISM
     Dosage: 25 UG, QD
     Route: 065

REACTIONS (1)
  - Fall [Fatal]

NARRATIVE: CASE EVENT DATE: 201409
